FAERS Safety Report 8248031-8 (Version None)
Quarter: 2012Q1

REPORT INFORMATION
  Report Type: 
  Country: None (occurrence: None)
  Receive Date: 20120330
  Receipt Date: 20120319
  Transmission Date: 20120608
  Serious: Yes (Other)
  Sender: FDA-Public Use
  Company Number: FR-ROCHE-1052811

PATIENT
  Age: 49 Year
  Sex: Male

DRUGS (4)
  1. SYMBICORT [Concomitant]
  2. THEOPHYLLINE [Concomitant]
  3. XOLAIR [Suspect]
     Indication: ASTHMA
     Dates: start: 20110101
  4. SINGULAIR [Concomitant]

REACTIONS (3)
  - CARDIOMYOPATHY [None]
  - CORONARY ARTERY STENOSIS [None]
  - MYOCARDIAL INFARCTION [None]
